FAERS Safety Report 19258702 (Version 1)
Quarter: 2021Q2

REPORT INFORMATION
  Report Type: Spontaneous
  Country: US (occurrence: US)
  Receive Date: 20210514
  Receipt Date: 20210514
  Transmission Date: 20210717
  Serious: Yes (Disabling)
  Sender: FDA-Public Use
  Company Number: US-MYLANLABS-2021M1028125

PATIENT
  Age: 4 Month
  Sex: Male

DRUGS (7)
  1. TOPOTECAN [Suspect]
     Active Substance: TOPOTECAN HYDROCHLORIDE
     Indication: CONGENITAL RETINOBLASTOMA
     Dosage: 0.3 MILLIGRAM, CYCLE
     Route: 013
  2. CARBOPLATIN. [Suspect]
     Active Substance: CARBOPLATIN
     Indication: CONGENITAL RETINOBLASTOMA
     Dosage: 5 CYCLES OF SYSTEMIC CHEMOTHERAPY
     Route: 065
  3. MELPHALAN. [Suspect]
     Active Substance: MELPHALAN
     Indication: CONGENITAL RETINOBLASTOMA
     Dosage: 20 MICROGRAM RECEIVED TWO INJECTIONS
  4. ETOPOSIDE. [Suspect]
     Active Substance: ETOPOSIDE
     Indication: CONGENITAL RETINOBLASTOMA
     Dosage: 5 CYCLES OF SYSTEMIC CHEMOTHERAPY
     Route: 065
  5. CARBOPLATIN. [Suspect]
     Active Substance: CARBOPLATIN
     Indication: CONGENITAL RETINOBLASTOMA
     Dosage: 30 MILLIGRAM, CYCLE
     Route: 013
  6. MELPHALAN. [Suspect]
     Active Substance: MELPHALAN
     Indication: CONGENITAL RETINOBLASTOMA
     Dosage: 3 MILLIGRAM, CYCLE
     Route: 013
  7. VINCRISTINE [Suspect]
     Active Substance: VINCRISTINE
     Indication: CONGENITAL RETINOBLASTOMA
     Dosage: 5 CYCLES OF SYSTEMIC CHEMOTHERAPY
     Route: 065

REACTIONS (3)
  - Retinopathy proliferative [Not Recovered/Not Resolved]
  - Off label use [Unknown]
  - Macular fibrosis [Not Recovered/Not Resolved]
